FAERS Safety Report 9116293 (Version 2)
Quarter: 2013Q1

REPORT INFORMATION
  Report Type: Spontaneous
  Country: DE (occurrence: DE)
  Receive Date: 20130225
  Receipt Date: 20130319
  Transmission Date: 20140127
  Serious: Yes (Other)
  Sender: FDA-Public Use
  Company Number: DE-RANBAXY-2013US-65380

PATIENT
  Age: 51 Year
  Sex: Female

DRUGS (5)
  1. IBUPROFEN [Suspect]
     Indication: PRODUCT USED FOR UNKNOWN INDICATION
     Dosage: 50-100 TABLETS ONCE
     Route: 065
     Dates: start: 20130131
  2. LYRICA [Suspect]
     Indication: PRODUCT USED FOR UNKNOWN INDICATION
     Dosage: 50-100 TABLETS ONCE
     Route: 065
     Dates: start: 20130131
  3. METAMIZOLE [Suspect]
     Indication: PRODUCT USED FOR UNKNOWN INDICATION
     Dosage: 50-100 TABLETS ONCE
     Route: 065
     Dates: start: 20130131
  4. PANTOZOL [Suspect]
     Indication: PRODUCT USED FOR UNKNOWN INDICATION
     Dosage: APPROXIMATELY 50 TABLETS ONCE
     Route: 048
     Dates: start: 20130131
  5. TARGIN RETARD 20/10 [Suspect]
     Indication: PRODUCT USED FOR UNKNOWN INDICATION
     Dosage: 50-100 TABLETS ONCE
     Route: 065
     Dates: start: 20130131

REACTIONS (5)
  - Suicidal ideation [Unknown]
  - Vomiting [Recovered/Resolved]
  - Somnolence [Recovered/Resolved]
  - Overdose [Unknown]
  - Intentional drug misuse [Unknown]
